FAERS Safety Report 25429073 (Version 1)
Quarter: 2025Q2

REPORT INFORMATION
  Report Type: Spontaneous
  Country: US (occurrence: None)
  Receive Date: 20250611
  Receipt Date: 20250611
  Transmission Date: 20250716
  Serious: Yes (Hospitalization)
  Sender: FDA-CTU
  Company Number: None

PATIENT
  Age: 62 Year
  Sex: Male
  Weight: 111.6 kg

DRUGS (5)
  1. GAMUNEX-C [Suspect]
     Active Substance: HUMAN IMMUNOGLOBULIN G
     Indication: Hypogammaglobulinaemia
     Route: 042
     Dates: start: 20250505, end: 20250505
  2. GAMUNEX-C [Suspect]
     Active Substance: HUMAN IMMUNOGLOBULIN G
     Indication: Renal transplant
  3. acetaminophen 650 mg PO once [Concomitant]
     Dates: start: 20250505, end: 20250505
  4. cetirizine 10 mg PO once [Concomitant]
     Dates: start: 20250505, end: 20250505
  5. sodium chloride 0.9% infusion 250 mL IV continuous, 20 mL/hr [Concomitant]
     Dates: start: 20250505, end: 20250505

REACTIONS (3)
  - Visual impairment [None]
  - Weight increased [None]
  - Fluid retention [None]

NARRATIVE: CASE EVENT DATE: 20250505
